FAERS Safety Report 13515736 (Version 4)
Quarter: 2017Q2

REPORT INFORMATION
  Report Type: Spontaneous
  Country: CN (occurrence: CN)
  Receive Date: 20170504
  Receipt Date: 20170630
  Transmission Date: 20170830
  Serious: Yes (Other)
  Sender: FDA-Public Use
  Company Number: CN-BAXTER-2017BAX018976

PATIENT
  Age: 39 Year
  Sex: Female
  Weight: 50 kg

DRUGS (13)
  1. PROPOFOL. [Suspect]
     Active Substance: PROPOFOL
     Indication: GENERAL ANAESTHESIA
     Route: 042
     Dates: start: 20170425
  2. REMIFENTANIL [Suspect]
     Active Substance: REMIFENTANIL
     Indication: MAINTENANCE OF ANAESTHESIA
     Dosage: 0.5 MG/H, CONTINUOUS PUMP INJECTION
     Route: 065
     Dates: start: 20170425
  3. VOLUVEN [Suspect]
     Active Substance: HYDROXYETHYL STARCH 130/0.4
     Indication: PRODUCT USED FOR UNKNOWN INDICATION
     Route: 065
  4. EPINEPHRINE. [Suspect]
     Active Substance: EPINEPHRINE
     Indication: HYPERTHERMIA MALIGNANT
     Route: 065
     Dates: start: 20170425
  5. CISATRACURIUM. [Suspect]
     Active Substance: CISATRACURIUM
     Indication: GENERAL ANAESTHESIA
     Route: 042
     Dates: start: 20170425
  6. SODIUM PHOSPHOCREATINE [Suspect]
     Active Substance: PHOSPHOCREATINE SODIUM
     Indication: PRODUCT USED FOR UNKNOWN INDICATION
     Route: 065
  7. QIFUMEI [Suspect]
     Active Substance: SEVOFLURANE
     Indication: MAINTENANCE OF ANAESTHESIA
     Dosage: 1.5 V/V
     Route: 055
     Dates: start: 20170425, end: 20170425
  8. ULINASTATIN [Suspect]
     Active Substance: ULINASTATIN
     Indication: PRODUCT USED FOR UNKNOWN INDICATION
     Route: 065
  9. 0.9% SODIUM CHLORIDE INJECTION [Suspect]
     Active Substance: SODIUM CHLORIDE
     Indication: HYPERTHERMIA MALIGNANT
     Dosage: ICY
     Route: 065
     Dates: start: 20170425
  10. DEXMEDETOMIDINE. [Suspect]
     Active Substance: DEXMEDETOMIDINE
     Indication: PRODUCT USED FOR UNKNOWN INDICATION
     Route: 065
  11. METHYLPREDNISOLONE. [Suspect]
     Active Substance: METHYLPREDNISOLONE
     Indication: HYPERTHERMIA MALIGNANT
     Route: 065
     Dates: start: 20170425
  12. SUFENTANIL [Suspect]
     Active Substance: SUFENTANIL
     Indication: GENERAL ANAESTHESIA
     Route: 042
     Dates: start: 20170425
  13. NOREPINEPHRINE. [Suspect]
     Active Substance: NOREPINEPHRINE
     Indication: HYPERTHERMIA MALIGNANT
     Route: 065
     Dates: start: 20170425

REACTIONS (6)
  - Hyperthermia malignant [Unknown]
  - Respiratory failure [Unknown]
  - Disseminated intravascular coagulation [Unknown]
  - Renal failure [Unknown]
  - Ventricular fibrillation [Unknown]
  - Anaemia [Unknown]

NARRATIVE: CASE EVENT DATE: 20170425
